FAERS Safety Report 21713664 (Version 1)
Quarter: 2022Q4

REPORT INFORMATION
  Report Type: Spontaneous
  Country: US (occurrence: US)
  Receive Date: 20221212
  Receipt Date: 20221212
  Transmission Date: 20230112
  Serious: No
  Sender: FDA-Public Use
  Company Number: US-AMERICAN REGENT INC-2022002870

PATIENT
  Sex: Female

DRUGS (2)
  1. VENOFER [Suspect]
     Active Substance: IRON SUCROSE
     Indication: Anaemia
     Dosage: UNK
     Route: 065
     Dates: start: 2013, end: 2013
  2. VENOFER [Suspect]
     Active Substance: IRON SUCROSE
     Dosage: ONE CYCLE
     Route: 065
     Dates: start: 2021, end: 2021

REACTIONS (3)
  - Drug ineffective for unapproved indication [Unknown]
  - Product use in unapproved indication [Unknown]
  - Off label use [Unknown]

NARRATIVE: CASE EVENT DATE: 20130101
